FAERS Safety Report 7135582-2 (Version None)
Quarter: 2010Q4

REPORT INFORMATION
  Report Type: 
  Country: None (occurrence: None)
  Receive Date: 20101203
  Receipt Date: 20101119
  Transmission Date: 20110411
  Serious: Yes (Hospitalization)
  Sender: FDA-Public Use
  Company Number: FR-MYLANLABS-2010S1021769

PATIENT
  Age: 24 Year
  Sex: Female

DRUGS (3)
  1. DEPAKOTE [Suspect]
     Indication: INTENTIONAL OVERDOSE
     Dosage: 125 X 500MG TABLETS; TOTAL DOSE }1000 MG/KG
     Route: 048
  2. ALPRAZOLAM [Suspect]
     Indication: INTENTIONAL OVERDOSE
  3. TIAPRIDE [Suspect]
     Indication: INTENTIONAL OVERDOSE

REACTIONS (3)
  - DRUG TOXICITY [None]
  - INTENTIONAL OVERDOSE [None]
  - SUICIDE ATTEMPT [None]
